FAERS Safety Report 13034693 (Version 1)
Quarter: 2016Q4

REPORT INFORMATION
  Report Type: Report from Study
  Country: CO (occurrence: CO)
  Receive Date: 20161216
  Receipt Date: 20161216
  Transmission Date: 20170207
  Serious: Yes (Death)
  Sender: FDA-Public Use
  Company Number: PHHY2016CO152115

PATIENT
  Age: 57 Year
  Sex: Female
  Weight: 39 kg

DRUGS (1)
  1. AFINITOR [Suspect]
     Active Substance: EVEROLIMUS
     Indication: RENAL CANCER
     Dosage: 10 MG, QD
     Route: 048
     Dates: start: 20160819

REACTIONS (8)
  - Headache [Unknown]
  - Pyrexia [Unknown]
  - Death [Fatal]
  - Influenza [Unknown]
  - Pain [Unknown]
  - Neck pain [Unknown]
  - Cough [Unknown]
  - Dyspnoea [Unknown]

NARRATIVE: CASE EVENT DATE: 20161130
